FAERS Safety Report 12214112 (Version 3)
Quarter: 2016Q2

REPORT INFORMATION
  Report Type: Spontaneous
  Country: US (occurrence: US)
  Receive Date: 20160328
  Receipt Date: 20160503
  Transmission Date: 20160815
  Serious: Yes (Hospitalization, Other)
  Sender: FDA-Public Use
  Company Number: US-PFIZER INC-2016169095

PATIENT
  Age: 31 Year
  Sex: Female
  Weight: 76.2 kg

DRUGS (8)
  1. NEURONTIN [Suspect]
     Active Substance: GABAPENTIN
     Indication: DIABETIC NEUROPATHY
     Dosage: 1000 MG, 3X/DAY
     Dates: start: 2008
  2. XANAX [Concomitant]
     Active Substance: ALPRAZOLAM
     Indication: ANXIETY
     Dosage: 0.25MG, ONE TABLET TWICE A DAY AND THEN TWO TABLETS AT BED TIME
     Dates: start: 201511
  3. BUTRANS [Concomitant]
     Active Substance: BUPRENORPHINE
     Dosage: 10 MICROGRAMS/HOUR
     Dates: start: 20160303
  4. XANAX [Concomitant]
     Active Substance: ALPRAZOLAM
     Indication: DEPRESSION
  5. ULTRAM [Concomitant]
     Active Substance: TRAMADOL HYDROCHLORIDE
     Indication: PAIN
     Dosage: 50MG THREE TABLETS THREE TIMES A DAY
     Dates: start: 2013
  6. WARFARIN [Concomitant]
     Active Substance: WARFARIN
     Dosage: 10.5 MG, 1X/DAY
     Dates: start: 20151231
  7. LYRICA [Suspect]
     Active Substance: PREGABALIN
     Indication: DIABETIC NEUROPATHY
     Dosage: UNK
     Route: 048
     Dates: start: 2012
  8. LYRICA [Suspect]
     Active Substance: PREGABALIN
     Indication: FIBROMYALGIA
     Dosage: 225 MG, 2X/DAY
     Route: 048

REACTIONS (4)
  - Osteomyelitis [Recovered/Resolved]
  - Neoplasm malignant [Unknown]
  - Product use issue [Unknown]
  - Thrombosis [Recovered/Resolved]

NARRATIVE: CASE EVENT DATE: 2008
